FAERS Safety Report 5244824-X (Version None)
Quarter: 2007Q1

REPORT INFORMATION
  Report Type: 
  Country: None (occurrence: None)
  Receive Date: 20070216
  Receipt Date: 20061218
  Transmission Date: 20070707
  Serious: Yes (Life-Threatening, Hospitalization, Other)
  Sender: FDA-Public Use
  Company Number: 2007SP002650

PATIENT
  Age: 75 Year
  Sex: Male

DRUGS (8)
  1. ODYNE (FLUTAMIDE)  (FLUTAMIDE) [Suspect]
     Indication: PROSTATE CANCER
     Dosage: 375 MG; PO
     Route: 048
     Dates: start: 20061109, end: 20061127
  2. FUROSEMIDE [Concomitant]
  3. IRSOOGLADINE MALEATE [Concomitant]
  4. ESTRAMUSTINE PHOSPHATE SODIUM [Concomitant]
  5. .. [Concomitant]
  6. ALLOPURINOL [Concomitant]
  7. ZOPICLONE [Concomitant]
  8. CASODEX [Concomitant]

REACTIONS (8)
  - ALANINE AMINOTRANSFERASE INCREASED [None]
  - ASPARTATE AMINOTRANSFERASE INCREASED [None]
  - ATRIAL FIBRILLATION [None]
  - CARDIAC FAILURE [None]
  - DYSPNOEA [None]
  - HEPATIC FUNCTION ABNORMAL [None]
  - PNEUMONIA [None]
  - RENAL FAILURE ACUTE [None]
